FAERS Safety Report 24331894 (Version 1)
Quarter: 2024Q3

REPORT INFORMATION
  Report Type: Report from Study
  Country: CO (occurrence: CO)
  Receive Date: 20240918
  Receipt Date: 20240918
  Transmission Date: 20241016
  Serious: Yes (Hospitalization)
  Sender: ROCHE
  Company Number: CO-002147023-NVSC2024CO145848

PATIENT
  Age: 46 Year
  Sex: Female
  Weight: 54 kg

DRUGS (2)
  1. XOLAIR [Suspect]
     Active Substance: OMALIZUMAB
     Indication: Chronic spontaneous urticaria
     Dosage: 300 MG, QMO
     Route: 050
     Dates: start: 20240704
  2. XOLAIR [Suspect]
     Active Substance: OMALIZUMAB
     Dosage: 300 MG, QMO
     Route: 050
     Dates: start: 20240910

REACTIONS (6)
  - Inflammation [Unknown]
  - Swelling face [Unknown]
  - Choking [Unknown]
  - Eye allergy [Unknown]
  - Urticaria [Unknown]
  - Respiratory disorder [Unknown]
